FAERS Safety Report 11847314 (Version 1)
Quarter: 2015Q4

REPORT INFORMATION
  Report Type: Spontaneous
  Country: US (occurrence: US)
  Receive Date: 20151217
  Receipt Date: 20151217
  Transmission Date: 20160305
  Serious: No
  Sender: FDA-Public Use
  Company Number: US-ROCHE-1485786

PATIENT
  Sex: Female

DRUGS (9)
  1. OXYCONTIN [Concomitant]
     Active Substance: OXYCODONE HYDROCHLORIDE
     Indication: PAIN
     Dosage: IN MORNING AND AT NIGHT
     Route: 065
  2. MELATONIN [Concomitant]
     Active Substance: MELATONIN
  3. TAMIFLU [Suspect]
     Active Substance: OSELTAMIVIR PHOSPHATE
     Indication: INFLUENZA
     Dosage: TAKEN FOR 5 DAYS
     Route: 065
     Dates: start: 201409
  4. DEPAKOTE [Concomitant]
     Active Substance: DIVALPROEX SODIUM
     Indication: HEADACHE
     Route: 065
  5. CEVIMELINE. [Concomitant]
     Active Substance: CEVIMELINE
     Route: 065
  6. OXYCODONE [Concomitant]
     Active Substance: OXYCODONE
     Indication: PAIN
     Dosage: UP TO 3 TIMES A DAY AS NEEDED
     Route: 065
  7. WELLBUTRIN [Concomitant]
     Active Substance: BUPROPION HYDROCHLORIDE
     Indication: DEPRESSION
     Route: 065
  8. TRAZODONE [Concomitant]
     Active Substance: TRAZODONE HYDROCHLORIDE
     Route: 065
  9. JOLESSA [Concomitant]
     Active Substance: ETHINYL ESTRADIOL\LEVONORGESTREL
     Indication: HORMONE LEVEL ABNORMAL

REACTIONS (3)
  - Vomiting [Not Recovered/Not Resolved]
  - Impaired gastric emptying [Unknown]
  - Nausea [Not Recovered/Not Resolved]
